FAERS Safety Report 6839945-1 (Version None)
Quarter: 2010Q3

REPORT INFORMATION
  Report Type: 
  Country: None (occurrence: None)
  Receive Date: 20100714
  Receipt Date: 20100712
  Transmission Date: 20110219
  Serious: Yes (Life-Threatening)
  Sender: FDA-Public Use
  Company Number: B0662409A

PATIENT
  Age: 20 Year
  Sex: Male
  Weight: 113 kg

DRUGS (1)
  1. ORLISTAT [Suspect]
     Indication: WEIGHT CONTROL
     Dosage: 120MG PER DAY
     Route: 048
     Dates: start: 20100519, end: 20100531

REACTIONS (2)
  - DIARRHOEA [None]
  - RECTAL HAEMORRHAGE [None]
